APPROVED DRUG PRODUCT: SAPROPTERIN DIHYDROCHLORIDE
Active Ingredient: SAPROPTERIN DIHYDROCHLORIDE
Strength: 500MG/PACKET
Dosage Form/Route: POWDER;ORAL
Application: A215420 | Product #002 | TE Code: AB
Applicant: ANNORA PHARMA PRIVATE LTD
Approved: Aug 18, 2022 | RLD: No | RS: No | Type: RX